FAERS Safety Report 17882989 (Version 1)
Quarter: 2020Q2

REPORT INFORMATION
  Report Type: Report from Study
  Country: US (occurrence: US)
  Receive Date: 20200610
  Receipt Date: 20200610
  Transmission Date: 20200714
  Serious: Yes (Hospitalization, Other)
  Sender: FDA-Public Use
  Company Number: US-AUROBINDO-AUR-APL-2020-028083

PATIENT
  Weight: 1.7 kg

DRUGS (6)
  1. BUPIVACAINE HYDROCHLORIDE 0.5% (5 MG/ML) [Suspect]
     Active Substance: BUPIVACAINE HYDROCHLORIDE
     Indication: EPIDURAL ANAESTHESIA
     Dosage: UNK
     Route: 064
  2. METHADONE [Suspect]
     Active Substance: METHADONE HYDROCHLORIDE
     Indication: EPIDURAL ANAESTHESIA
     Dosage: UNK
     Route: 064
  3. EPINEPHRINE. [Suspect]
     Active Substance: EPINEPHRINE
     Indication: EPIDURAL ANAESTHESIA
     Dosage: UNK
     Route: 064
  4. LIDOCAINE 20MG/ML [Suspect]
     Active Substance: LIDOCAINE
     Indication: EPIDURAL ANAESTHESIA
     Dosage: UNK
     Route: 064
  5. MORPHINE [Suspect]
     Active Substance: MORPHINE
     Indication: EPIDURAL ANAESTHESIA
     Dosage: UNK
     Route: 064
  6. FENTANYL. [Suspect]
     Active Substance: FENTANYL
     Indication: EPIDURAL ANAESTHESIA
     Dosage: UNK
     Route: 064

REACTIONS (2)
  - Foetal exposure during pregnancy [Unknown]
  - Drug withdrawal syndrome neonatal [Unknown]
